FAERS Safety Report 5586086-X (Version None)
Quarter: 2007Q4

REPORT INFORMATION
  Report Type: 
  Country: None (occurrence: None)
  Receive Date: 20071205
  Receipt Date: 20070725
  Transmission Date: 20080405
  Serious: Yes (Hospitalization)
  Sender: FDA-Public Use
  Company Number: HQWYE229326JUL07

PATIENT
  Age: 50 Year
  Sex: Female
  Weight: 68.1 kg

DRUGS (6)
  1. EFFEXOR XR [Suspect]
     Indication: DEPRESSION
     Dosage: 300 MG 1X PER 1 DAY, ORAL ; 225 MG 1X PER 1 DAY, ORAL
     Route: 048
     Dates: start: 20070101, end: 20070501
  2. EFFEXOR XR [Suspect]
     Indication: DEPRESSION
     Dosage: 300 MG 1X PER 1 DAY, ORAL ; 225 MG 1X PER 1 DAY, ORAL
     Route: 048
     Dates: start: 20070501
  3. SEROQUEL [Concomitant]
  4. TEGRETOL [Concomitant]
  5. ADDERALL 10 [Concomitant]
  6. CLONAZEPAM [Concomitant]

REACTIONS (14)
  - AFFECT LABILITY [None]
  - BUCCOGLOSSAL SYNDROME [None]
  - DIARRHOEA [None]
  - DRY EYE [None]
  - DRY MOUTH [None]
  - GAIT DISTURBANCE [None]
  - HYPOGEUSIA [None]
  - NAUSEA [None]
  - PARAESTHESIA [None]
  - PARAESTHESIA ORAL [None]
  - SOMNOLENCE [None]
  - THINKING ABNORMAL [None]
  - TRISMUS [None]
  - VOMITING [None]
